FAERS Safety Report 17886253 (Version 1)
Quarter: 2020Q2

REPORT INFORMATION
  Report Type: Spontaneous
  Country: CA (occurrence: CA)
  Receive Date: 20200611
  Receipt Date: 20200611
  Transmission Date: 20200714
  Serious: Yes (Other)
  Sender: FDA-Public Use
  Company Number: CA-LEO PHARMA-329976

PATIENT
  Age: 71 Year
  Sex: Female

DRUGS (7)
  1. COSENTYX [Suspect]
     Active Substance: SECUKINUMAB
     Indication: PSORIASIS
     Dosage: 300.0 MG 1 EVERY 1 MONTH
     Route: 058
  2. ACITRETIN. [Concomitant]
     Active Substance: ACITRETIN
     Indication: PRODUCT USED FOR UNKNOWN INDICATION
     Dosage: 25.0 MG THERAPY DURATION: 7.0 YEARS
  3. HUMIRA [Concomitant]
     Active Substance: ADALIMUMAB
     Indication: PRODUCT USED FOR UNKNOWN INDICATION
     Route: 058
  4. METHOTREXATE. [Suspect]
     Active Substance: METHOTREXATE
     Indication: PRODUCT USED FOR UNKNOWN INDICATION
     Dosage: 20.0 M SOLUTION THERAPY DURATION: 9.0 MTHS
  5. DESOXIMETASONE. [Suspect]
     Active Substance: DESOXIMETASONE
     Indication: PRODUCT USED FOR UNKNOWN INDICATION
  6. DAIVOBET [Suspect]
     Active Substance: BETAMETHASONE DIPROPIONATE\CALCIPOTRIENE
     Indication: PRODUCT USED FOR UNKNOWN INDICATION
  7. STELARA [Concomitant]
     Active Substance: USTEKINUMAB
     Indication: PRODUCT USED FOR UNKNOWN INDICATION

REACTIONS (19)
  - Eye infection [Unknown]
  - Psoriasis [Unknown]
  - Purulent discharge [Unknown]
  - Blood pressure systolic increased [Unknown]
  - Erythema [Unknown]
  - Ocular hyperaemia [Unknown]
  - Pain [Unknown]
  - Skin lesion [Unknown]
  - Skin plaque [Unknown]
  - Drug ineffective [Unknown]
  - Pollakiuria [Unknown]
  - Dry skin [Unknown]
  - Oedema peripheral [Unknown]
  - Bladder disorder [Unknown]
  - Insomnia [Unknown]
  - Pruritus [Unknown]
  - Scratch [Unknown]
  - Skin exfoliation [Unknown]
  - Burning sensation [Unknown]
